FAERS Safety Report 8911634 (Version 1)
Quarter: 2012Q4

REPORT INFORMATION
  Report Type: 
  Country: US (occurrence: US)
  Receive Date: 20121115
  Receipt Date: 20121115
  Transmission Date: 20130627
  Serious: No
  Sender: FDA-Public Use
  Company Number: US-ORACLE-2012P1052921

PATIENT
  Age: 60 Year
  Sex: Female
  Weight: 48.99 kg

DRUGS (2)
  1. MUPIROCIN [Suspect]
     Route: 045
     Dates: end: 20120806
  2. AMBIEN [Concomitant]

REACTIONS (3)
  - Paranasal sinus hypersecretion [Recovering/Resolving]
  - Pyrexia [Recovered/Resolved]
  - Pseudomonas infection [Not Recovered/Not Resolved]
